FAERS Safety Report 7075093-6 (Version None)
Quarter: 2010Q4

REPORT INFORMATION
  Report Type: 
  Country: None (occurrence: None)
  Receive Date: 20101029
  Receipt Date: 20100408
  Transmission Date: 20110411
  Serious: No
  Sender: FDA-Public Use
  Company Number: US-WYE-H14407310

PATIENT
  Age: 31 Year
  Sex: Female
  Weight: 53.12 kg

DRUGS (2)
  1. ALAVERT D-12 [Suspect]
     Indication: HYPERSENSITIVITY
     Route: 048
     Dates: start: 20090101, end: 20100329
  2. ARMOUR THYROID [Concomitant]

REACTIONS (5)
  - DRUG INEFFECTIVE [None]
  - FEELING ABNORMAL [None]
  - INAPPROPRIATE SCHEDULE OF DRUG ADMINISTRATION [None]
  - INSOMNIA [None]
  - SOMNOLENCE [None]
